FAERS Safety Report 20155804 (Version 1)
Quarter: 2021Q4

REPORT INFORMATION
  Report Type: Spontaneous
  Country: CA (occurrence: CA)
  Receive Date: 20211207
  Receipt Date: 20211207
  Transmission Date: 20220303
  Serious: Yes (Death)
  Sender: FDA-Public Use
  Company Number: CA-TEVA-2021-CA-1984162

PATIENT
  Age: 38 Year
  Sex: Male
  Weight: 68 kg

DRUGS (6)
  1. ALCOHOL [Suspect]
     Active Substance: ALCOHOL
     Route: 065
  2. FENTANYL [Suspect]
     Active Substance: FENTANYL
     Route: 065
  3. COCAINE [Concomitant]
     Active Substance: COCAINE
  4. DILANTIN [Concomitant]
     Active Substance: PHENYTOIN
  5. LORAZEPAM [Concomitant]
     Active Substance: LORAZEPAM
  6. ZOPICLONE [Concomitant]
     Active Substance: ZOPICLONE

REACTIONS (4)
  - Blood ethanol increased [Fatal]
  - Cardiac arrest [Fatal]
  - Opiates positive [Fatal]
  - Toxicity to various agents [Fatal]
